FAERS Safety Report 13300969 (Version 1)
Quarter: 2017Q1

REPORT INFORMATION
  Report Type: Not Available
  Country: CA (occurrence: CA)
  Receive Date: 20170307
  Receipt Date: 20170307
  Transmission Date: 20170428
  Serious: Yes (Other)
  Sender: FDA-Public Use
  Company Number: CA--2017-CA-000005

PATIENT
  Age: 64 Year
  Sex: Male

DRUGS (1)
  1. DONEPEZIL HYDROCHLORIDE BRAND UNSPECIFIED (VIVIMED) [Suspect]
     Active Substance: DONEPEZIL HYDROCHLORIDE
     Indication: PRODUCT USED FOR UNKNOWN INDICATION

REACTIONS (2)
  - Wrong patient received medication [None]
  - Mania [Recovered/Resolved]
